FAERS Safety Report 5129413-X (Version None)
Quarter: 2006Q4

REPORT INFORMATION
  Report Type: 
  Country: None (occurrence: None)
  Receive Date: 20061012
  Receipt Date: 20060928
  Transmission Date: 20070319
  Serious: Yes (Death, Hospitalization)
  Sender: FDA-Public Use
  Company Number: 2006122864

PATIENT
  Sex: Female

DRUGS (3)
  1. CELEBREX [Suspect]
     Dates: start: 20030210, end: 20041201
  2. BEXTRA [Suspect]
     Dates: start: 20030210, end: 20041201
  3. VIOXX [Suspect]
     Dates: start: 20030901, end: 20031001

REACTIONS (1)
  - PULMONARY EMBOLISM [None]
